FAERS Safety Report 6856608-7 (Version None)
Quarter: 2010Q3

REPORT INFORMATION
  Report Type: 
  Country: None (occurrence: None)
  Receive Date: 20100719
  Receipt Date: 20100712
  Transmission Date: 20110219
  Serious: Yes (Other)
  Sender: FDA-Public Use
  Company Number: BR-ROCHE-715481

PATIENT
  Sex: Female
  Weight: 3 kg

DRUGS (3)
  1. ROACUTAN [Suspect]
     Indication: ACNE
     Route: 064
     Dates: start: 19980101, end: 19980101
  2. ROACUTAN [Suspect]
     Route: 064
     Dates: start: 20060101, end: 20060101
  3. DIANE [Concomitant]
     Indication: CONTRACEPTION

REACTIONS (2)
  - BRADYCARDIA [None]
  - NORMAL NEWBORN [None]
